FAERS Safety Report 14374909 (Version 1)
Quarter: 2018Q1

REPORT INFORMATION
  Report Type: Spontaneous
  Country: CN (occurrence: CN)
  Receive Date: 20180111
  Receipt Date: 20180111
  Transmission Date: 20180509
  Serious: Yes (Hospitalization)
  Sender: FDA-Public Use
  Company Number: CN-NAPPMUNDI-GBR-2017-0051914

PATIENT
  Age: 78 Year
  Sex: Female

DRUGS (2)
  1. OXYCONTIN [Suspect]
     Active Substance: OXYCODONE HYDROCHLORIDE
     Indication: CARCINOID TUMOUR OF THE PANCREAS
     Dosage: 20 MG, BID
     Route: 048
     Dates: start: 20171107, end: 20171110
  2. OXYCONTIN [Suspect]
     Active Substance: OXYCODONE HYDROCHLORIDE
     Dosage: 10 MG, Q12H
     Route: 048
     Dates: start: 20171106, end: 20171107

REACTIONS (5)
  - Visual acuity tests abnormal [Recovering/Resolving]
  - Dizziness [Recovering/Resolving]
  - Nausea [Recovering/Resolving]
  - Vomiting [Recovering/Resolving]
  - Ocular discomfort [Recovering/Resolving]

NARRATIVE: CASE EVENT DATE: 20171110
